FAERS Safety Report 25709898 (Version 1)
Quarter: 2025Q3

REPORT INFORMATION
  Report Type: Spontaneous
  Country: CN (occurrence: CN)
  Receive Date: 20250821
  Receipt Date: 20250821
  Transmission Date: 20251020
  Serious: Yes (Other)
  Sender: ROCHE
  Company Number: CN-CHEPLA-2025009881

PATIENT
  Age: 61 Year
  Sex: Male
  Weight: 67 kg

DRUGS (9)
  1. CAPECITABINE [Suspect]
     Active Substance: CAPECITABINE
     Indication: Adenocarcinoma of colon
     Dosage: 1500 MG BID 14 DAYS; APPROVAL NO. GYZZ H20073024; 7TH CYCLE OF XELOX Q3W
     Route: 048
     Dates: start: 20241223, end: 20241223
  2. CAPECITABINE [Suspect]
     Active Substance: CAPECITABINE
     Indication: Metastases to liver
  3. CAPECITABINE [Suspect]
     Active Substance: CAPECITABINE
     Indication: Metastases to pelvis
  4. AVASTIN [Suspect]
     Active Substance: BEVACIZUMAB
     Indication: Adenocarcinoma of colon
     Dosage: 400 MG QD; APPROVAL NO. S20170035; 7TH CYCLE OF XELOX Q3W
     Route: 042
     Dates: start: 20241223, end: 20241223
  5. AVASTIN [Suspect]
     Active Substance: BEVACIZUMAB
     Indication: Metastases to liver
  6. AVASTIN [Suspect]
     Active Substance: BEVACIZUMAB
     Indication: Metastases to pelvis
  7. OXALIPLATIN [Suspect]
     Active Substance: OXALIPLATIN
     Indication: Adenocarcinoma of colon
     Dosage: 180 MG QD IVGTT D1; APPROVAL NO. GYZZ H20203216; 7TH CYCLE OF XELOX Q3W
     Route: 042
     Dates: start: 20241223, end: 20241223
  8. OXALIPLATIN [Suspect]
     Active Substance: OXALIPLATIN
     Indication: Metastases to liver
  9. OXALIPLATIN [Suspect]
     Active Substance: OXALIPLATIN
     Indication: Metastases to pelvis

REACTIONS (1)
  - Myelosuppression [Recovering/Resolving]

NARRATIVE: CASE EVENT DATE: 20250116
